FAERS Safety Report 5032209-0 (Version None)
Quarter: 2006Q2

REPORT INFORMATION
  Report Type: 
  Country: None (occurrence: None)
  Receive Date: 20060619
  Receipt Date: 20060607
  Transmission Date: 20061013
  Serious: Yes (Life-Threatening, Hospitalization, Congenital Anomaly, Other)
  Sender: FDA-Public Use
  Company Number: 2006074344

PATIENT
  Age: 82 Year
  Sex: Female
  Weight: 60.3284 kg

DRUGS (7)
  1. NORVASC [Suspect]
     Indication: HYPERTENSION
     Dosage: 5 MG (5 MG, 1 IN 1 D), ORAL
     Route: 048
     Dates: start: 19950101, end: 20000101
  2. LIPITOR [Concomitant]
  3. ZESTRIL [Concomitant]
  4. OMEPRAZOLE [Concomitant]
  5. ATENOLOL [Concomitant]
  6. XANAX [Concomitant]
  7. NEXIUM [Concomitant]

REACTIONS (10)
  - ANXIETY [None]
  - BLOOD SODIUM DECREASED [None]
  - CARDIAC FAILURE CONGESTIVE [None]
  - CAROTID ARTERY OCCLUSION [None]
  - CONDITION AGGRAVATED [None]
  - DEPRESSION [None]
  - GASTROOESOPHAGEAL REFLUX DISEASE [None]
  - HYPERTENSION [None]
  - INJURY [None]
  - SHOULDER PAIN [None]
